FAERS Safety Report 5964954-4 (Version None)
Quarter: 2008Q4

REPORT INFORMATION
  Report Type: 
  Country: None (occurrence: None)
  Receive Date: 20081125
  Receipt Date: 20081112
  Transmission Date: 20090506
  Serious: Yes (Hospitalization, Other)
  Sender: FDA-Public Use
  Company Number: PHEH2008US10191

PATIENT
  Sex: Male
  Weight: 70.748 kg

DRUGS (11)
  1. TASIGNA [Suspect]
     Indication: CHRONIC MYELOID LEUKAEMIA
     Dosage: 200 MG, QD
     Route: 048
     Dates: start: 20071203
  2. TASIGNA [Suspect]
     Dosage: 400 MG, BID
  3. TASIGNA [Suspect]
     Dosage: 400 MG, QD
     Route: 048
  4. ACIPHEX [Concomitant]
     Dosage: 20 MG, QD
  5. LIPITOR [Concomitant]
  6. CALCIUM [Concomitant]
  7. ASCORBIC ACID [Concomitant]
  8. VIAGRA [Concomitant]
     Dosage: UNK
  9. FISH OIL [Concomitant]
  10. REGLAN [Concomitant]
     Dosage: 10 MG, BID PRN
  11. ZANTAC [Concomitant]
     Dosage: 150 MG, BID

REACTIONS (8)
  - ANAEMIA [None]
  - ATRIAL FIBRILLATION [None]
  - CONFUSIONAL STATE [None]
  - FATIGUE [None]
  - HYPOTHYROIDISM [None]
  - PLATELET COUNT DECREASED [None]
  - PNEUMONIA [None]
  - WHITE BLOOD CELL COUNT DECREASED [None]
